FAERS Safety Report 4939302-9 (Version None)
Quarter: 2006Q1

REPORT INFORMATION
  Report Type: 
  Country: None (occurrence: None)
  Receive Date: 20060310
  Receipt Date: 20051222
  Transmission Date: 20060701
  Serious: Yes (Hospitalization)
  Sender: FDA-Public Use
  Company Number: 2005AP06606

PATIENT
  Age: 29512 Day
  Sex: Male

DRUGS (13)
  1. CASODEX [Suspect]
     Indication: PROSTATE CANCER
     Route: 048
     Dates: start: 20050725, end: 20051114
  2. ZOLADEX [Suspect]
     Indication: PROSTATE CANCER
     Route: 058
     Dates: start: 19970701
  3. ZOLADEX [Concomitant]
     Indication: PROSTATE CANCER
     Dates: start: 19970701
  4. NORVASC [Concomitant]
     Indication: HYPERTENSION
     Route: 048
     Dates: end: 20051017
  5. LASIX [Concomitant]
     Indication: HYPERTENSION
     Route: 048
  6. TAGAMET [Concomitant]
     Indication: GASTRIC ULCER
     Route: 048
  7. MAGNESIUM OXIDE [Concomitant]
     Indication: CONSTIPATION
     Route: 048
  8. SM [Concomitant]
     Indication: VOMITING
     Route: 048
  9. ULCERLMIN [Concomitant]
     Indication: GASTRIC ULCER
     Route: 048
  10. BERIZYM [Concomitant]
     Indication: GASTRITIS
     Route: 048
  11. URSOSAN [Concomitant]
     Indication: CHRONIC HEPATITIS
     Route: 048
  12. MUCODYNE [Concomitant]
     Indication: BRONCHITIS CHRONIC
     Route: 048
  13. BUFFERIN [Concomitant]
     Indication: ANGINA PECTORIS
     Route: 048

REACTIONS (1)
  - MALAISE [None]
